FAERS Safety Report 23750190 (Version 2)
Quarter: 2024Q2

REPORT INFORMATION
  Report Type: Spontaneous
  Country: US (occurrence: US)
  Receive Date: 20240417
  Receipt Date: 20240425
  Transmission Date: 20240716
  Serious: Yes (Other)
  Sender: FDA-Public Use
  Company Number: US-SUN PHARMACEUTICAL INDUSTRIES LTD-2024R1-441742

PATIENT
  Age: 62 Year
  Sex: Male

DRUGS (1)
  1. CAPECITABINE [Suspect]
     Active Substance: CAPECITABINE
     Indication: Adenocarcinoma
     Dosage: UNK
     Route: 065

REACTIONS (3)
  - Cardiac failure acute [Unknown]
  - Cardiogenic shock [Unknown]
  - Cardiotoxicity [Unknown]
